FAERS Safety Report 10507509 (Version 3)
Quarter: 2015Q1

REPORT INFORMATION
  Report Type: Spontaneous
  Country: CA (occurrence: CA)
  Receive Date: 20141009
  Receipt Date: 20150304
  Transmission Date: 20150720
  Serious: Yes (Life-Threatening)
  Sender: FDA-Public Use
  Company Number: CA-SA-2014SA135359

PATIENT
  Age: 14 Year
  Sex: Male

DRUGS (2)
  1. ALLERJECT [Suspect]
     Active Substance: EPINEPHRINE
     Indication: ANAPHYLACTIC REACTION
     Dosage: STRENGTH:0.3 MG
     Route: 048
     Dates: start: 20140926
  2. ALLERJECT [Suspect]
     Active Substance: EPINEPHRINE
     Indication: ANAPHYLACTIC REACTION
     Dosage: STRENGTH:0.3 MG
     Route: 048
     Dates: start: 20140926

REACTIONS (5)
  - Anaphylactic reaction [Recovered/Resolved]
  - Dysphagia [Unknown]
  - Feeling hot [Unknown]
  - Therapeutic response decreased [Unknown]
  - Pruritus generalised [Unknown]

NARRATIVE: CASE EVENT DATE: 20140926
